FAERS Safety Report 7315963-4 (Version None)
Quarter: 2011Q1

REPORT INFORMATION
  Report Type: 
  Country: None (occurrence: None)
  Receive Date: 20110225
  Receipt Date: 20110218
  Transmission Date: 20110831
  Serious: Yes (Other)
  Sender: FDA-Public Use
  Company Number: US-CEPHALON-2011000825

PATIENT
  Sex: Male

DRUGS (2)
  1. NUVIGIL [Suspect]
     Indication: NARCOLEPSY
     Route: 048
     Dates: start: 20110101
  2. ADDERALL 10 [Concomitant]

REACTIONS (2)
  - DENTAL CARIES [None]
  - TOOTH LOSS [None]
